FAERS Safety Report 4374719-5 (Version None)
Quarter: 2004Q2

REPORT INFORMATION
  Report Type: 
  Country: None (occurrence: None)
  Receive Date: 20040604
  Receipt Date: 20040526
  Transmission Date: 20050107
  Serious: Yes (Death, Hospitalization, Other)
  Sender: FDA-Public Use
  Company Number: 2004033320

PATIENT
  Age: 89 Year
  Sex: Male

DRUGS (7)
  1. ZYRTEC [Suspect]
     Indication: PRURITUS
     Dosage: 10 MG, ORAL
     Route: 048
     Dates: start: 20040418, end: 20040420
  2. PHENPROCOUMON (PHENPROCOUMON) [Concomitant]
  3. ALLOPURINOL [Concomitant]
  4. VERAPAMIL HCL [Concomitant]
  5. TORSEMIDE [Concomitant]
  6. DIGITOXIN TAB [Concomitant]
  7. PROSTAMED [Concomitant]

REACTIONS (10)
  - AUTOIMMUNE THROMBOCYTOPENIA [None]
  - EXANTHEM [None]
  - GASTRIC HAEMORRHAGE [None]
  - HAEMOGLOBIN DECREASED [None]
  - HYPERSENSITIVITY [None]
  - INTERNATIONAL NORMALISED RATIO INCREASED [None]
  - PROTHROMBIN TIME PROLONGED [None]
  - RASH PRURITIC [None]
  - RED BLOOD CELL COUNT DECREASED [None]
  - TACHYARRHYTHMIA [None]
